FAERS Safety Report 19674399 (Version 1)
Quarter: 2021Q3

REPORT INFORMATION
  Report Type: Spontaneous
  Country: US (occurrence: US)
  Receive Date: 20210809
  Receipt Date: 20210809
  Transmission Date: 20211014
  Serious: Yes (Death)
  Sender: FDA-Public Use
  Company Number: None

PATIENT
  Age: 43 Year
  Sex: Male
  Weight: 105 kg

DRUGS (1)
  1. REGEN?COV [Suspect]
     Active Substance: CASIRIVIMAB\IMDEVIMAB
     Indication: COVID-19 PNEUMONIA
     Route: 042
     Dates: start: 20210716, end: 20210716

REACTIONS (5)
  - Dyspepsia [None]
  - Oxygen saturation decreased [None]
  - General physical health deterioration [None]
  - Pulseless electrical activity [None]
  - Cardio-respiratory arrest [None]

NARRATIVE: CASE EVENT DATE: 20210718
